FAERS Safety Report 6143590-3 (Version None)
Quarter: 2009Q2

REPORT INFORMATION
  Report Type: 
  Country: None (occurrence: None)
  Receive Date: 20090403
  Receipt Date: 20090331
  Transmission Date: 20091009
  Serious: Yes (Death, Other)
  Sender: FDA-Public Use
  Company Number: IN-WYE-H08764709

PATIENT
  Sex: Female

DRUGS (1)
  1. ZOSYN [Suspect]
     Route: 042
     Dates: start: 20081020, end: 20081024

REACTIONS (5)
  - BLISTER [None]
  - DEATH [None]
  - DYSPNOEA [None]
  - EPISTAXIS [None]
  - ERYTHEMA [None]
